FAERS Safety Report 5729938-X (Version None)
Quarter: 2008Q2

REPORT INFORMATION
  Report Type: 
  Country: None (occurrence: None)
  Receive Date: 20080507
  Receipt Date: 20080425
  Transmission Date: 20081010
  Serious: Yes (Other)
  Sender: FDA-Public Use
  Company Number: TW-BRISTOL-MYERS SQUIBB COMPANY-14173801

PATIENT
  Age: 37 Year
  Sex: Female

DRUGS (1)
  1. MITOMYCIN [Suspect]
     Indication: TRABECULECTOMY
     Route: 031

REACTIONS (1)
  - ENDOPHTHALMITIS [None]
